FAERS Safety Report 4325379-0 (Version None)
Quarter: 2004Q1

REPORT INFORMATION
  Report Type: 
  Country: None (occurrence: None)
  Receive Date: 20040324
  Receipt Date: 20040311
  Transmission Date: 20041129
  Serious: No
  Sender: FDA-Public Use
  Company Number: 03P-130-0237791-00

PATIENT
  Age: 53 Year
  Sex: Female

DRUGS (4)
  1. BIAXIN [Suspect]
     Indication: RESPIRATORY TRACT INFECTION
     Dosage: 500 MG, 1 IN 1 D, PER ORAL
     Route: 048
     Dates: start: 20030801, end: 20030810
  2. MEBEVERINE [Concomitant]
  3. DOMPERIDONE [Concomitant]
  4. AMILASE+LIPASE PROTEASE [Concomitant]

REACTIONS (5)
  - GENITAL RASH [None]
  - PRURITUS [None]
  - SKIN DESQUAMATION [None]
  - SKIN FISSURES [None]
  - THERMAL BURN [None]
